FAERS Safety Report 6794653-0 (Version None)
Quarter: 2010Q2

REPORT INFORMATION
  Report Type: 
  Country: None (occurrence: None)
  Receive Date: 20100625
  Receipt Date: 20100614
  Transmission Date: 20101027
  Serious: Yes (Hospitalization)
  Sender: FDA-Public Use
  Company Number: US-JNJFOC-20100606403

PATIENT
  Age: 73 Year
  Sex: Female

DRUGS (3)
  1. REMICADE [Suspect]
     Indication: MUSCULOSKELETAL PAIN
     Dosage: DOSE REPORTED AS ^3^
     Route: 042
  2. METHOTREXATE [Suspect]
     Indication: MUSCULOSKELETAL PAIN
  3. PREDNISONE [Suspect]
     Indication: MUSCULOSKELETAL PAIN

REACTIONS (1)
  - PNEUMONIA LEGIONELLA [None]
